APPROVED DRUG PRODUCT: VELETRI
Active Ingredient: EPOPROSTENOL SODIUM
Strength: EQ 1.5MG BASE/VIAL
Dosage Form/Route: INJECTABLE;INJECTION
Application: N022260 | Product #001 | TE Code: AP2
Applicant: ACTELION PHARMACEUTICALS US INC
Approved: Jun 27, 2008 | RLD: Yes | RS: Yes | Type: RX

PATENTS:
Patent 8598227 | Expires: Feb 2, 2027
Patent 8318802 | Expires: Mar 15, 2027